FAERS Safety Report 8581766-6 (Version None)
Quarter: 2012Q3

REPORT INFORMATION
  Report Type: 
  Country: None (occurrence: None)
  Receive Date: 20120720
  Receipt Date: 20110707
  Transmission Date: 20120928
  Serious: Yes (Hospitalization)
  Sender: FDA-Public Use
  Company Number: KV200800728

PATIENT
  Age: 52 Year
  Sex: Female
  Weight: 105.7 kg

DRUGS (25)
  1. PROCHLORPERAZINE [Concomitant]
  2. PAXIL [Concomitant]
  3. ZOCOR [Concomitant]
  4. ONDANSETRON [Concomitant]
  5. LIDOCAINE [Concomitant]
  6. ALBUTEROL [Concomitant]
  7. CYCLOBENZAPRINE [Concomitant]
  8. COLACE (DOCUSATE SODIUM) [Concomitant]
  9. MILK OF MAGNESIA TAB [Concomitant]
  10. CLINDAMYCIN [Concomitant]
  11. MORPHINE [Suspect]
     Indication: BACK PAIN
     Dosage: 60 MG, TID, ORAL : 60 MG, BID, ORAL
     Route: 048
     Dates: start: 20080423, end: 20080501
  12. ESTRATEST [Concomitant]
  13. SENOKOT (SENNA ALEXANDRINA) [Concomitant]
  14. MORPHINE SULFATE [Suspect]
     Indication: PAIN
     Dosage: 1-2 TABLETS, Q6-8 HRS., ORAL
     Route: 048
     Dates: start: 20080818, end: 20080827
  15. MORPHINE SULFATE [Suspect]
     Indication: PAIN
     Dosage: ORAL
     Route: 048
     Dates: start: 20080923
  16. ALPRAZOLAM [Concomitant]
  17. VARENICLINE [Concomitant]
  18. NEURONTIN [Concomitant]
  19. PLAVIX [Concomitant]
  20. COMBIVENT (IPRATROPIUM BROMIDE, SALBUTAMOL) [Concomitant]
  21. PREDNISONE TAB [Concomitant]
  22. PERCOCET [Concomitant]
  23. NAPROSYN [Concomitant]
  24. DIAZEPAM [Concomitant]
  25. HYDROCODONE BITARTRATE AND ACETAMINOPHEN (HYDROCODONE BITARTRATE, PARA [Concomitant]

REACTIONS (40)
  - PARANEOPLASTIC SYNDROME [None]
  - INTERMITTENT CLAUDICATION [None]
  - POLYURIA [None]
  - PAIN IN EXTREMITY [None]
  - PRODUCT QUALITY ISSUE [None]
  - BLOOD PRESSURE DECREASED [None]
  - ASTHENIA [None]
  - CHEST PAIN [None]
  - DYSPNOEA EXERTIONAL [None]
  - COUGH [None]
  - HYPOTENSION [None]
  - TOOTH EXTRACTION [None]
  - DECREASED APPETITE [None]
  - PALPITATIONS [None]
  - PALLOR [None]
  - CLUBBING [None]
  - FATIGUE [None]
  - MALAISE [None]
  - ANXIETY [None]
  - TREATMENT NONCOMPLIANCE [None]
  - INADEQUATE ANALGESIA [None]
  - VOMITING [None]
  - HYPOAESTHESIA [None]
  - HYPOXIA [None]
  - WEIGHT DECREASED [None]
  - OVERDOSE [None]
  - HEADACHE [None]
  - HAEMOPTYSIS [None]
  - ARTHRALGIA [None]
  - URINARY TRACT INFECTION [None]
  - PARAESTHESIA [None]
  - INSOMNIA [None]
  - BACK PAIN [None]
  - HEMIPARESIS [None]
  - NAUSEA [None]
  - BEDRIDDEN [None]
  - NON-SMALL CELL LUNG CANCER [None]
  - POLYCYTHAEMIA [None]
  - OEDEMA PERIPHERAL [None]
  - INAPPROPRIATE SCHEDULE OF DRUG ADMINISTRATION [None]
